FAERS Safety Report 6314512-7 (Version None)
Quarter: 2009Q3

REPORT INFORMATION
  Report Type: 
  Country: None (occurrence: None)
  Receive Date: 20090817
  Receipt Date: 20090817
  Transmission Date: 20100115
  Serious: Yes (Death, Life-Threatening, Hospitalization)
  Sender: FDA-Public Use
  Company Number: None

PATIENT
  Age: 19 Year
  Sex: Female
  Weight: 77.1115 kg

DRUGS (2)
  1. YAZ [Suspect]
     Indication: CONTRACEPTION
     Dates: start: 20061106, end: 20080713
  2. YAZ [Suspect]
     Indication: DYSMENORRHOEA
     Dates: start: 20061106, end: 20080713

REACTIONS (2)
  - PULMONARY EMBOLISM [None]
  - THROMBOSIS [None]
